FAERS Safety Report 4356700-5 (Version None)
Quarter: 2004Q2

REPORT INFORMATION
  Report Type: 
  Country: None (occurrence: None)
  Receive Date: 20040511
  Receipt Date: 20040426
  Transmission Date: 20050107
  Serious: Yes (Other)
  Sender: FDA-Public Use
  Company Number: DSA_24318_2004

PATIENT
  Age: 3 Year
  Sex: Male

DRUGS (1)
  1. NIFEDIPINE [Suspect]
     Indication: HYPERTENSIVE EMERGENCY
     Dosage: 2.5 MG ONCE PO
     Route: 048

REACTIONS (2)
  - BLOOD PRESSURE DIASTOLIC DECREASED [None]
  - HEART RATE INCREASED [None]
